FAERS Safety Report 8140368 (Version 9)
Quarter: 2014Q4

REPORT INFORMATION
  Report Type: Report from Study
  Country: US (occurrence: US)
  Receive Date: 20110916
  Receipt Date: 20141124
  Transmission Date: 20150529
  Serious: Yes (Hospitalization, Other)
  Sender: FDA-Public Use
  Company Number: US-GLAXOSMITHKLINE-R0019245A

PATIENT
  Age: 57 Year
  Sex: Female

DRUGS (8)
  1. ALENDRONATE [Suspect]
     Active Substance: ALENDRONATE SODIUM
     Indication: OSTEOPENIA
     Dosage: 70 MG SINGLE DOSE
     Route: 048
     Dates: start: 201002
  2. VYTORIN [Suspect]
     Active Substance: EZETIMIBE\SIMVASTATIN
     Indication: DYSLIPIDAEMIA
     Dosage: 1 TAB SINGLE DOSE
     Route: 048
     Dates: start: 2000
  3. BLINDED HZ/SU + AS01B [Suspect]
     Active Substance: INVESTIGATIONAL PRODUCT
     Indication: PROPHYLAXIS
     Route: 030
     Dates: start: 20101005, end: 20101005
  4. WELLBUTRIN SR [Suspect]
     Active Substance: BUPROPION HYDROCHLORIDE
     Indication: DEPRESSION
     Dosage: 150 MG SINGLE DOSE
     Route: 048
     Dates: start: 2009
  5. INFLUENZA VACCINE [Concomitant]
     Active Substance: INFLUENZA VIRUS VACCINE
     Route: 030
     Dates: start: 20120912
  6. CALCIUM [Suspect]
     Active Substance: CALCIUM
     Indication: OSTEOPENIA
     Dosage: 600 MG SINGLE DOSE
     Route: 048
     Dates: start: 2005
  7. PLACEBO [Suspect]
     Active Substance: UNSPECIFIED INGREDIENT
     Indication: PROPHYLAXIS
     Route: 030
     Dates: start: 20101005, end: 20101005
  8. AUGMENTAN [Suspect]
     Active Substance: AMOXICILLIN\CLAVULANATE POTASSIUM
     Indication: DIVERTICULITIS
     Dosage: 1750 MG SINGLE DOSE
     Route: 048
     Dates: start: 20110818, end: 20110901

REACTIONS (3)
  - Diverticulitis [Recovered/Resolved]
  - Diarrhoea [Recovered/Resolved]
  - Anastomotic leak [Recovered/Resolved]

NARRATIVE: CASE EVENT DATE: 20110626
